FAERS Safety Report 8983282 (Version 6)
Quarter: 2013Q2

REPORT INFORMATION
  Report Type: Spontaneous
  Country: JP (occurrence: JP)
  Receive Date: 20121224
  Receipt Date: 20130530
  Transmission Date: 20140414
  Serious: Yes (Hospitalization, Other)
  Sender: FDA-Public Use
  Company Number: PHHY2012JP117682

PATIENT
  Sex: Male

DRUGS (4)
  1. CERTICAN [Suspect]
     Indication: HEART TRANSPLANT
     Dosage: 2.5 MG, DAILY
     Route: 048
  2. TACROLIMUS [Concomitant]
     Indication: HEART TRANSPLANT
     Dosage: 10 MG, UNK
     Route: 048
  3. PREDNISOLONE [Concomitant]
     Indication: HEART TRANSPLANT
     Dosage: 5 MG, UNK
     Route: 048
  4. CYCLOSPORINE [Concomitant]
     Dosage: UNK

REACTIONS (16)
  - Gastric ulcer [Unknown]
  - Gastrointestinal haemorrhage [Unknown]
  - Abdominal pain [Not Recovered/Not Resolved]
  - Intestinal perforation [Unknown]
  - Ileal ulcer [Unknown]
  - Suture related complication [Unknown]
  - Acute abdomen [Unknown]
  - Small intestine ulcer [Unknown]
  - Haematochezia [Not Recovered/Not Resolved]
  - Gastrointestinal anastomotic leak [Unknown]
  - Tongue ulceration [Unknown]
  - Post transplant lymphoproliferative disorder [Recovered/Resolved]
  - Heart transplant rejection [Unknown]
  - Peritonitis [Unknown]
  - Pyrexia [Unknown]
  - Anaemia [Unknown]
